FAERS Safety Report 4550523-X (Version None)
Quarter: 2004Q4

REPORT INFORMATION
  Report Type: 
  Country: None (occurrence: None)
  Receive Date: 20041227
  Receipt Date: 20041111
  Transmission Date: 20050328
  Serious: No
  Sender: FDA-Public Use
  Company Number: 04P-163-0280660-00

PATIENT
  Age: 62 Year
  Sex: Female

DRUGS (5)
  1. HUMIRA [Suspect]
     Indication: RHEUMATOID ARTHRITIS
     Dosage: 40 MG, 1 IN 2 WK, SUBCUTANEOUS
     Route: 058
     Dates: start: 20041105
  2. METHOTREXATE [Concomitant]
  3. FOLIC ACID [Concomitant]
  4. HYDROXYCHLOROQUINE SULFATE [Concomitant]
  5. CITALOPRAM HYDROBROMIDE [Concomitant]

REACTIONS (2)
  - HYPOAESTHESIA [None]
  - PARAESTHESIA [None]
